FAERS Safety Report 7455923-6 (Version None)
Quarter: 2011Q2

REPORT INFORMATION
  Report Type: 
  Country: None (occurrence: None)
  Receive Date: 20110503
  Receipt Date: 20110427
  Transmission Date: 20111010
  Serious: Yes (Other)
  Sender: FDA-Public Use
  Company Number: SK-PFIZER INC-2011090607

PATIENT
  Age: 59 Year
  Sex: Male
  Weight: 102 kg

DRUGS (12)
  1. ACETYLSALICYLIC ACID [Concomitant]
     Dosage: UNK
     Dates: start: 20100121
  2. LOPERAMIDE [Concomitant]
     Dosage: UNK
     Dates: start: 20100614
  3. BACLOFEN [Concomitant]
     Indication: PARAPARESIS
     Dosage: UNK
     Dates: start: 20100115
  4. CIPRINOL [Concomitant]
     Dosage: UNK
     Dates: start: 20100310, end: 20100323
  5. TETRAZEPAM [Concomitant]
     Dosage: UNK
     Dates: start: 20100402
  6. AMOXICILLIN AND CLAVULANATE POTASSIUM [Concomitant]
     Dosage: UNK
     Dates: start: 20100308, end: 20100318
  7. SUNITINIB MALATE [Suspect]
     Indication: RENAL CELL CARCINOMA
     Dosage: 50 MG, UNK
     Dates: start: 20091222
  8. AMLODIPINE BESILATE [Concomitant]
     Dosage: UNK
     Dates: start: 20100120
  9. CLODRONATE DISODIUM [Concomitant]
     Dosage: UNK
     Dates: start: 20091127, end: 20091130
  10. REASEC [Concomitant]
     Dosage: UNK
     Dates: start: 20100614
  11. PERINDOPRIL [Concomitant]
     Indication: HYPERTENSION
  12. CLODRONATE DISODIUM [Concomitant]
     Dosage: UNK
     Dates: start: 20100503

REACTIONS (1)
  - ANAL ABSCESS [None]
